FAERS Safety Report 4277477-8 (Version None)
Quarter: 2004Q1

REPORT INFORMATION
  Report Type: 
  Country: None (occurrence: None)
  Receive Date: 20040122
  Receipt Date: 20020516
  Transmission Date: 20041129
  Serious: Yes (Death)
  Sender: FDA-Public Use
  Company Number: WAES 0205USA01986

PATIENT
  Age: 79 Year
  Sex: Male

DRUGS (7)
  1. [THERAPY UNSPECIFIED] [Concomitant]
     Indication: ARTHRITIS
  2. LASIX [Concomitant]
  3. PLAQUENIL [Concomitant]
     Indication: ARTHRITIS
  4. CLARITIN [Concomitant]
     Indication: HYPERSENSITIVITY
  5. SINGULAIR [Concomitant]
     Indication: ASTHMA
     Route: 048
  6. PREDNISONE [Concomitant]
     Indication: ARTHRITIS
  7. VIOXX [Suspect]
     Indication: RHEUMATOID ARTHRITIS
     Route: 048
     Dates: start: 20000512, end: 20000101

REACTIONS (1)
  - MYOCARDIAL INFARCTION [None]
